FAERS Safety Report 22907606 (Version 6)
Quarter: 2025Q1

REPORT INFORMATION
  Report Type: Spontaneous
  Country: CA (occurrence: CA)
  Receive Date: 20230905
  Receipt Date: 20250113
  Transmission Date: 20250408
  Serious: Yes (Hospitalization, Other)
  Sender: PFIZER
  Company Number: CA-PFIZER INC-202300144851

PATIENT
  Age: 45 Year
  Sex: Male
  Weight: 86 kg

DRUGS (19)
  1. RUXIENCE [Suspect]
     Active Substance: RITUXIMAB-PVVR
     Indication: Granulomatosis with polyangiitis
     Dosage: 500 MG, WEEKLY (FOR 4 DOSES)
     Route: 042
     Dates: start: 20230419
  2. RUXIENCE [Suspect]
     Active Substance: RITUXIMAB-PVVR
     Dosage: 500 MG, WEEKLY (FOR 4 DOSES) (FOUR TIMES THEN EVERY 6 MONTHS)
     Route: 042
     Dates: start: 20230426
  3. RUXIENCE [Suspect]
     Active Substance: RITUXIMAB-PVVR
     Dosage: 500 MG, WEEKLY (FOR 4 DOSES) (FOUR TIMES THEN EVERY 6 MONTHS)
     Route: 042
     Dates: start: 20230426
  4. RUXIENCE [Suspect]
     Active Substance: RITUXIMAB-PVVR
     Dosage: 500 MG, WEEKLY (FOR 4 DOSES) (AFTER 1 WEEK)
     Route: 042
     Dates: start: 20230503, end: 20230503
  5. RUXIENCE [Suspect]
     Active Substance: RITUXIMAB-PVVR
     Dosage: 500 MG, WEEKLY (FOR 4 DOSES)
     Route: 042
     Dates: start: 20230510
  6. RUXIENCE [Suspect]
     Active Substance: RITUXIMAB-PVVR
     Dosage: 500 MG, WEEKLY (1 DOSE EVERY WEEKS FOR 4 DOSES)
     Route: 042
     Dates: start: 20230818, end: 20230908
  7. RUXIENCE [Suspect]
     Active Substance: RITUXIMAB-PVVR
     Dosage: 500 MG, WEEKLY (1 DOSE EVERY WEEKS FOR 4 DOSES)
     Route: 042
     Dates: start: 20231220, end: 20240110
  8. RUXIENCE [Suspect]
     Active Substance: RITUXIMAB-PVVR
     Dosage: 500 MG, WEEKLY (1 DOSE EVERY WEEKS FOR 4 DOSES)
     Route: 042
     Dates: start: 20240422, end: 20240516
  9. RUXIENCE [Suspect]
     Active Substance: RITUXIMAB-PVVR
     Dosage: 500 MG, WEEKLY (1 DOSE EVERY WEEKS FOR 4 DOSES)
     Route: 042
     Dates: start: 20240828, end: 20240918
  10. RUXIENCE [Suspect]
     Active Substance: RITUXIMAB-PVVR
     Dosage: 500 MG, WEEKLY (1 DOSE EVERY WEEKS FOR 4 DOSES)
     Route: 042
     Dates: start: 20241216
  11. RUXIENCE [Suspect]
     Active Substance: RITUXIMAB-PVVR
     Route: 042
  12. ACETAMINOPHEN [Concomitant]
     Active Substance: ACETAMINOPHEN
     Indication: Premedication
     Route: 048
     Dates: start: 20230426, end: 20230426
  13. ACETAMINOPHEN [Concomitant]
     Active Substance: ACETAMINOPHEN
     Route: 048
     Dates: start: 20230503, end: 20230503
  14. AZATHIOPRINE [Concomitant]
     Active Substance: AZATHIOPRINE
  15. BENADRYL [Concomitant]
     Active Substance: DIPHENHYDRAMINE HYDROCHLORIDE
     Indication: Premedication
     Route: 048
     Dates: start: 20230503, end: 20230503
  16. DIPHENHYDRAMINE [Concomitant]
     Active Substance: DIPHENHYDRAMINE
     Indication: Premedication
     Route: 048
     Dates: start: 20230426, end: 20230426
  17. PREDNISONE [Concomitant]
     Active Substance: PREDNISONE
  18. SOLU-MEDROL [Concomitant]
     Active Substance: METHYLPREDNISOLONE SODIUM SUCCINATE
     Indication: Premedication
     Route: 042
     Dates: start: 20230426, end: 20230426
  19. METHYLPREDNISOLONE [Concomitant]
     Active Substance: METHYLPREDNISOLONE
     Indication: Premedication
     Route: 048
     Dates: start: 20230503, end: 20230503

REACTIONS (9)
  - Pulmonary oedema [Recovering/Resolving]
  - Oxygen saturation decreased [Unknown]
  - Chemical poisoning [Recovered/Resolved]
  - COVID-19 pneumonia [Unknown]
  - Blood pressure increased [Unknown]
  - Cough [Recovered/Resolved]
  - Off label use [Unknown]
  - Off label use [Unknown]
  - Intentional product use issue [Unknown]

NARRATIVE: CASE EVENT DATE: 20230426
